FAERS Safety Report 12559154 (Version 1)
Quarter: 2016Q3

REPORT INFORMATION
  Report Type: Spontaneous
  Country: US (occurrence: US)
  Receive Date: 20160715
  Receipt Date: 20160715
  Transmission Date: 20161109
  Serious: No
  Sender: FDA-Public Use
  Company Number: US-TEVA-662167USA

PATIENT
  Age: 32 Year
  Sex: Female

DRUGS (4)
  1. ZECUITY [Suspect]
     Active Substance: SUMATRIPTAN SUCCINATE
     Route: 062
     Dates: start: 20160504, end: 20160504
  2. ZECUITY [Suspect]
     Active Substance: SUMATRIPTAN SUCCINATE
     Route: 062
     Dates: start: 20160511, end: 20160511
  3. ZECUITY [Suspect]
     Active Substance: SUMATRIPTAN SUCCINATE
     Indication: MIGRAINE
     Route: 062
     Dates: start: 20160503, end: 20160503
  4. ZECUITY [Suspect]
     Active Substance: SUMATRIPTAN SUCCINATE
     Route: 062
     Dates: start: 20160510, end: 20160510

REACTIONS (6)
  - Application site inflammation [Unknown]
  - Application site pruritus [Unknown]
  - Migraine [Unknown]
  - Application site rash [Unknown]
  - Application site erythema [Unknown]
  - Product leakage [Unknown]

NARRATIVE: CASE EVENT DATE: 20160503
